FAERS Safety Report 10279095 (Version 4)
Quarter: 2015Q4

REPORT INFORMATION
  Report Type: Report from Study
  Country: US (occurrence: US)
  Receive Date: 20140707
  Receipt Date: 20151203
  Transmission Date: 20160304
  Serious: Yes (Hospitalization, Other)
  Sender: FDA-Public Use
  Company Number: US-AMGEN INC.-USASP2014049833

PATIENT
  Age: 76 Year
  Sex: Male

DRUGS (1)
  1. ENBREL [Suspect]
     Active Substance: ETANERCEPT
     Indication: ANKYLOSING SPONDYLITIS
     Dosage: 25 MG, 2 TIMES/WK
     Route: 065
     Dates: start: 20020930

REACTIONS (10)
  - Confusional state [Unknown]
  - Device failure [Not Recovered/Not Resolved]
  - Renal failure [Unknown]
  - Surgery [Unknown]
  - Tooth extraction [Unknown]
  - Feeding disorder [Unknown]
  - Arthropathy [Recovered/Resolved]
  - Post procedural complication [Recovered/Resolved]
  - Haemoglobin decreased [Unknown]
  - Hip arthroplasty [Unknown]

NARRATIVE: CASE EVENT DATE: 2010
